FAERS Safety Report 16726232 (Version 2)
Quarter: 2019Q3

REPORT INFORMATION
  Report Type: Spontaneous
  Country: US (occurrence: US)
  Receive Date: 20190821
  Receipt Date: 20190822
  Transmission Date: 20191005
  Serious: Yes (Hospitalization)
  Sender: FDA-Public Use
  Company Number: US-CELGENEUS-USA-20190806198

PATIENT
  Age: 63 Year
  Sex: Female
  Weight: 45.85 kg

DRUGS (2)
  1. ABRAXANE [Suspect]
     Active Substance: PACLITAXEL
     Indication: NEOPLASM MALIGNANT
     Dosage: 100 MILLIGRAM/SQ. METER
     Route: 041
     Dates: start: 20190809
  2. CARBOPLATIN. [Suspect]
     Active Substance: CARBOPLATIN
     Indication: NEOPLASM MALIGNANT
     Dosage: 578.5 MILLIGRAM
     Route: 041
     Dates: start: 20190809

REACTIONS (4)
  - Pneumonia aspiration [Unknown]
  - Failure to thrive [Unknown]
  - Wound [Unknown]
  - Dehydration [Unknown]

NARRATIVE: CASE EVENT DATE: 20190816
